FAERS Safety Report 18915447 (Version 1)
Quarter: 2021Q1

REPORT INFORMATION
  Report Type: Spontaneous
  Country: US (occurrence: US)
  Receive Date: 20210219
  Receipt Date: 20210219
  Transmission Date: 20210420
  Serious: No
  Sender: FDA-Public Use
  Company Number: None

PATIENT
  Age: 52 Year
  Sex: Male

DRUGS (2)
  1. ULORIC [Concomitant]
     Active Substance: FEBUXOSTAT
  2. ENBREL [Suspect]
     Active Substance: ETANERCEPT
     Route: 058
     Dates: start: 20161102

REACTIONS (3)
  - Intentional dose omission [None]
  - Condition aggravated [None]
  - Discomfort [None]

NARRATIVE: CASE EVENT DATE: 20210120
